FAERS Safety Report 11098654 (Version 1)
Quarter: 2015Q2

REPORT INFORMATION
  Report Type: Spontaneous
  Country: AR (occurrence: AR)
  Receive Date: 20150507
  Receipt Date: 20150507
  Transmission Date: 20150821
  Serious: Yes (Other)
  Sender: FDA-Public Use
  Company Number: ALCN2015AR002965

PATIENT
  Age: 66 Year
  Sex: Female

DRUGS (1)
  1. CIPROFLOXACIN HCL/DEXAMETHASONE [Suspect]
     Active Substance: CIPROFLOXACIN HYDROCHLORIDE\DEXAMETHASONE
     Indication: STREPTOCOCCAL INFECTION
     Dosage: 1 DF, UNK
     Route: 061

REACTIONS (7)
  - Corneal infiltrates [Recovered/Resolved]
  - Conjunctival hyperaemia [Recovered/Resolved]
  - Drug ineffective [Recovered/Resolved]
  - Fungal test positive [None]
  - Keratitis [None]
  - Hypopyon [Recovered/Resolved]
  - Keratitis [Recovered/Resolved]
